FAERS Safety Report 6654772-6 (Version None)
Quarter: 2010Q1

REPORT INFORMATION
  Report Type: 
  Country: None (occurrence: None)
  Receive Date: 20100328
  Receipt Date: 20100316
  Transmission Date: 20100710
  Serious: Yes (Other)
  Sender: FDA-Public Use
  Company Number: ZA-BRISTOL-MYERS SQUIBB COMPANY-15023245

PATIENT
  Age: 18 Year
  Sex: Female
  Weight: 46 kg

DRUGS (3)
  1. ATAZANAVIR [Suspect]
     Indication: HIV INFECTION
     Route: 048
     Dates: start: 20051108, end: 20100225
  2. STAVUDINE [Suspect]
     Indication: HIV INFECTION
     Dosage: STOPPED BEFORE ON 25FEB10
     Route: 048
     Dates: start: 20051108, end: 20100225
  3. LAMIVUDINE [Suspect]
     Indication: HIV INFECTION
     Dosage: STOPPED BEFORE ON 25FEB10
     Route: 048
     Dates: start: 20051108, end: 20100225

REACTIONS (2)
  - ABORTION SPONTANEOUS [None]
  - PREGNANCY [None]
